FAERS Safety Report 17725783 (Version 1)
Quarter: 2020Q2

REPORT INFORMATION
  Report Type: Spontaneous
  Country: GB (occurrence: GB)
  Receive Date: 20200429
  Receipt Date: 20200429
  Transmission Date: 20200714
  Serious: Yes (Hospitalization)
  Sender: FDA-Public Use
  Company Number: GB-PFIZER INC-2020167326

PATIENT
  Age: 82 Year
  Sex: Female

DRUGS (13)
  1. SIMVASTATIN. [Concomitant]
     Active Substance: SIMVASTATIN
     Dosage: 40 MG, 1X/DAY (AT NIGHT)
     Route: 048
  2. GABAPENTIN. [Suspect]
     Active Substance: GABAPENTIN
     Dosage: 1800 MG, 1X/DAY
     Route: 048
  3. PARACETAMOL [Concomitant]
     Active Substance: ACETAMINOPHEN
     Dosage: UNK, AS NEEDED (AT 1-2 FOUR TIMES PER DAY AS NEEDED)
     Route: 048
  4. METFORMIN [Concomitant]
     Active Substance: METFORMIN HYDROCHLORIDE
     Dosage: 1000 MG, 1X/DAY
     Route: 048
  5. FUROSEMIDE. [Concomitant]
     Active Substance: FUROSEMIDE
     Dosage: 20 MG, 1X/DAY
     Route: 048
  6. CLOPIDOGREL [Concomitant]
     Active Substance: CLOPIDOGREL BISULFATE
     Dosage: 75 MG, 1X/DAY
     Route: 048
  7. CLONAZEPAM. [Suspect]
     Active Substance: CLONAZEPAM
     Dosage: 1 MG, 1X/DAY (AT NIGHT)
     Route: 048
  8. CANDESARTAN. [Concomitant]
     Active Substance: CANDESARTAN
     Dosage: 16 MG, 1X/DAY
     Route: 048
  9. FERROUS FUMARATE [Concomitant]
     Active Substance: FERROUS FUMARATE
     Dosage: 630 MG, 1X/DAY
     Route: 048
  10. HUMAN INSULATARD [Suspect]
     Active Substance: INSULIN HUMAN
     Dosage: UNK (10UNITS AT BREAKFAST AND 20UNITS AT TEATIME; 3ML PRE-FILLED)
     Route: 058
  11. FENTANYL. [Concomitant]
     Active Substance: FENTANYL
     Dosage: 1 DF(EVERY 3 DAYS)
     Route: 062
  12. LANSOPRAZOLE. [Concomitant]
     Active Substance: LANSOPRAZOLE
     Dosage: 30 MG, 1X/DAY
     Route: 048
  13. DERMOL 500 LOTION [Concomitant]
     Dosage: AS NEEDED
     Route: 061

REACTIONS (5)
  - Somnolence [Unknown]
  - Fall [Unknown]
  - Confusional state [Recovered/Resolved]
  - Hypoglycaemia [Unknown]
  - Lethargy [Unknown]

NARRATIVE: CASE EVENT DATE: 20200321
